FAERS Safety Report 6092527-4 (Version None)
Quarter: 2009Q1

REPORT INFORMATION
  Report Type: 
  Country: None (occurrence: None)
  Receive Date: 20090223
  Receipt Date: 20090223
  Transmission Date: 20090719
  Serious: Yes (Other)
  Sender: FDA-Public Use
  Company Number: None

PATIENT
  Age: 28 Year
  Sex: Male
  Weight: 86.637 kg

DRUGS (1)
  1. ZYBAN [Suspect]
     Indication: SMOKING CESSATION THERAPY
     Dosage: 150 MG BID OROPHARINGEAL
     Route: 049
     Dates: start: 20090203, end: 20090221

REACTIONS (3)
  - JOINT SWELLING [None]
  - LIP SWELLING [None]
  - URTICARIA [None]
